FAERS Safety Report 10912467 (Version 1)
Quarter: 2015Q1

REPORT INFORMATION
  Report Type: Report from Study
  Country: TN (occurrence: TN)
  Receive Date: 20150313
  Receipt Date: 20150313
  Transmission Date: 20150721
  Serious: Yes (Death, Other)
  Sender: FDA-Public Use
  Company Number: TN-SA-2015SA030037

PATIENT
  Age: 85 Year
  Sex: Male

DRUGS (6)
  1. AMAREL [Concomitant]
     Active Substance: GLIMEPIRIDE
     Route: 048
     Dates: end: 201405
  2. ASPEGIC [Concomitant]
     Active Substance: ASPIRIN DL-LYSINE
     Route: 048
     Dates: end: 201405
  3. CORVASAL [Concomitant]
     Active Substance: LINSIDOMINE
     Route: 048
     Dates: end: 201405
  4. CARDENSIEL [Concomitant]
     Active Substance: BISOPROLOL FUMARATE
  5. PLAVIX [Suspect]
     Active Substance: CLOPIDOGREL BISULFATE
     Indication: MYOCARDIAL INFARCTION
     Route: 048
     Dates: start: 20140310, end: 201405
  6. LASILIX [Concomitant]
     Active Substance: FUROSEMIDE
     Route: 048
     Dates: end: 201405

REACTIONS (3)
  - Cardiac arrest [Fatal]
  - Intestinal obstruction [Unknown]
  - Gastrointestinal necrosis [Unknown]

NARRATIVE: CASE EVENT DATE: 201405
